FAERS Safety Report 22690031 (Version 2)
Quarter: 2023Q4

REPORT INFORMATION
  Report Type: Spontaneous
  Country: FR (occurrence: FR)
  Receive Date: 20230711
  Receipt Date: 20231023
  Transmission Date: 20240110
  Serious: Yes (Other)
  Sender: FDA-Public Use
  Company Number: None

PATIENT
  Age: 70 Year
  Sex: Male

DRUGS (1)
  1. LATANOPROST [Suspect]
     Active Substance: LATANOPROST
     Indication: Product used for unknown indication
     Dosage: A DROP IN THE LEFT EYE EVERY EVENING 7 PM, QD
     Route: 065
     Dates: start: 2021

REACTIONS (5)
  - Atrial tachycardia [Recovered/Resolved]
  - Arrhythmia [Recovered/Resolved]
  - Dizziness [Unknown]
  - Wrong technique in product usage process [Unknown]
  - Intentional product misuse [Unknown]
